FAERS Safety Report 5069721-4 (Version None)
Quarter: 2006Q3

REPORT INFORMATION
  Report Type: 
  Country: None (occurrence: None)
  Receive Date: 20060803
  Receipt Date: 20060727
  Transmission Date: 20061208
  Serious: Yes (Death)
  Sender: FDA-Public Use
  Company Number: TR-BRISTOL-MYERS SQUIBB COMPANY-13457551

PATIENT
  Age: 2 Year
  Sex: Female

DRUGS (4)
  1. VINCRISTINE SULFATE [Suspect]
     Indication: GANGLIONEUROBLASTOMA
  2. CISPLATIN [Suspect]
     Indication: GANGLIONEUROBLASTOMA
  3. CYCLOPHOSPHAMIDE [Suspect]
     Indication: GANGLIONEUROBLASTOMA
  4. RADIATION THERAPY [Suspect]
     Indication: GANGLIONEUROBLASTOMA

REACTIONS (2)
  - BONE SARCOMA [None]
  - TREATMENT RELATED SECONDARY MALIGNANCY [None]
